FAERS Safety Report 22129170 (Version 1)
Quarter: 2023Q1

REPORT INFORMATION
  Report Type: Spontaneous
  Country: US (occurrence: US)
  Receive Date: 20230323
  Receipt Date: 20230323
  Transmission Date: 20230418
  Serious: No
  Sender: FDA-Public Use
  Company Number: US-009507513-2303USA004755

PATIENT
  Sex: Male

DRUGS (1)
  1. VERQUVO [Suspect]
     Active Substance: VERICIGUAT
     Indication: Cardiac failure chronic
     Dosage: UNK
     Route: 048

REACTIONS (3)
  - Abdominal discomfort [Recovered/Resolved]
  - Dyspepsia [Recovered/Resolved]
  - Gastrooesophageal reflux disease [Recovered/Resolved]
